FAERS Safety Report 10279763 (Version 1)
Quarter: 2014Q3

REPORT INFORMATION
  Report Type: Spontaneous
  Country: IT (occurrence: None)
  Receive Date: 20140702
  Receipt Date: 20140702
  Transmission Date: 20150326
  Serious: Yes (Other)
  Sender: FDA-Public Use
  Company Number: DAV-AE-MTX-14-21

PATIENT
  Age: 16 Year
  Sex: Female

DRUGS (1)
  1. METHOTREXATE [Suspect]
     Active Substance: METHOTREXATE
     Indication: OSTEOSARCOMA
     Dosage: HIGHDOSEMTX 12G/ME2 CNTD

REACTIONS (7)
  - Vomiting [None]
  - Cardiovascular disorder [None]
  - Hepatotoxicity [None]
  - Abdominal pain [None]
  - Diarrhoea [None]
  - Hypotension [None]
  - Hypersensitivity [None]
